FAERS Safety Report 24369901 (Version 2)
Quarter: 2024Q4

REPORT INFORMATION
  Report Type: Spontaneous
  Country: US (occurrence: US)
  Receive Date: 20240927
  Receipt Date: 20241022
  Transmission Date: 20250115
  Serious: No
  Sender: ABBVIE
  Company Number: US-ABBVIE-5939157

PATIENT
  Age: 75 Year
  Sex: Female
  Weight: 58.966 kg

DRUGS (4)
  1. FLUOROMETHOLONE [Suspect]
     Active Substance: FLUOROMETHOLONE
     Indication: Hordeolum
     Dosage: DOSAGE: 0.1 MG/ML FORM STRENGTH: 0.1 MILLIGRAM/MILLILITERS TWICE A DAY FOR 7 DAYS, AS NEEDED ONLY
     Route: 047
     Dates: start: 2018, end: 202408
  2. FLUOROMETHOLONE [Suspect]
     Active Substance: FLUOROMETHOLONE
     Indication: Chalazion
  3. DOXYCYCLINE [Concomitant]
     Active Substance: DOXYCYCLINE
     Indication: Hordeolum
     Route: 065
  4. GABAPENTIN [Concomitant]
     Active Substance: GABAPENTIN
     Indication: Pain
     Route: 065

REACTIONS (5)
  - Skin swelling [Recovered/Resolved]
  - Skin discolouration [Recovering/Resolving]
  - Dry skin [Recovered/Resolved]
  - Skin exfoliation [Recovered/Resolved]
  - Skin burning sensation [Recovered/Resolved]

NARRATIVE: CASE EVENT DATE: 20240828
